FAERS Safety Report 18668834 (Version 1)
Quarter: 2020Q4

REPORT INFORMATION
  Report Type: Spontaneous
  Country: US (occurrence: US)
  Receive Date: 20201223
  Receipt Date: 20201223
  Transmission Date: 20210114
  Serious: No
  Sender: FDA-Public Use
  Company Number: None

PATIENT
  Sex: Female

DRUGS (4)
  1. MENOPUR [Concomitant]
     Active Substance: FOLLITROPIN\LUTEINIZING HORMONE
  2. NOVAREL [Concomitant]
     Active Substance: CHORIOGONADOTROPIN ALFA
  3. CETROTIDE [Suspect]
     Active Substance: CETRORELIX ACETATE
     Indication: INFERTILITY FEMALE
     Route: 058
     Dates: start: 20200812
  4. GONAL-F RFF [Concomitant]
     Active Substance: FOLLITROPIN

REACTIONS (1)
  - Abdominal distension [None]
